FAERS Safety Report 5179041-5 (Version None)
Quarter: 2006Q4

REPORT INFORMATION
  Report Type: 
  Country: None (occurrence: None)
  Receive Date: 20061219
  Receipt Date: 20061212
  Transmission Date: 20070319
  Serious: Yes (Other)
  Sender: FDA-Public Use
  Company Number: US-BRISTOL-MYERS SQUIBB COMPANY-13610282

PATIENT
  Age: 8 Year
  Sex: Male

DRUGS (10)
  1. CEENU [Suspect]
     Dates: start: 20061211, end: 20061211
  2. BACTRIM [Concomitant]
  3. PREVACID [Concomitant]
  4. CYCLOSPORINE [Concomitant]
  5. VALACYCLOVIR [Concomitant]
  6. FLUCONAZOLE [Concomitant]
  7. AMLODIPINE [Concomitant]
  8. FLUDROCORTISONE [Concomitant]
  9. DOCUSATE [Concomitant]
  10. ZOSYN [Concomitant]

REACTIONS (1)
  - ACCIDENTAL DRUG INTAKE BY CHILD [None]
